FAERS Safety Report 4567194-9 (Version None)
Quarter: 2005Q1

REPORT INFORMATION
  Report Type: 
  Country: None (occurrence: None)
  Receive Date: 20050201
  Receipt Date: 20041216
  Transmission Date: 20050727
  Serious: Yes (Hospitalization)
  Sender: FDA-Public Use
  Company Number: JP-GLAXOSMITHKLINE-B0362365A

PATIENT
  Age: 69 Year
  Sex: Male
  Weight: 66 kg

DRUGS (7)
  1. VALTREX [Suspect]
     Indication: HERPES SIMPLEX
     Dosage: 500MG TWICE PER DAY
     Route: 048
     Dates: start: 20041122, end: 20041202
  2. NEORAL [Concomitant]
     Indication: PSORIASIS
     Route: 048
  3. MEDROL [Concomitant]
     Dosage: 6MG PER DAY
     Route: 048
  4. AMLODIN [Concomitant]
     Indication: HYPERTENSION
     Dosage: 5MG PER DAY
     Route: 048
  5. MUCOSTA [Concomitant]
     Indication: GASTRITIS
     Dosage: 300MG PER DAY
     Route: 048
  6. BONALON [Concomitant]
     Indication: OSTEOPOROSIS
     Dosage: 5MG PER DAY
     Route: 048
     Dates: start: 20041210, end: 20041214
  7. LAXOBERON [Concomitant]
     Indication: CONSTIPATION
     Dosage: 1ML PER DAY
     Route: 048
     Dates: start: 20041204

REACTIONS (5)
  - BLISTER [None]
  - DRUG ERUPTION [None]
  - ERYTHEMA [None]
  - OEDEMA PERIPHERAL [None]
  - PYREXIA [None]
